FAERS Safety Report 4893282-3 (Version None)
Quarter: 2006Q1

REPORT INFORMATION
  Report Type: 
  Country: None (occurrence: None)
  Receive Date: 20060124
  Receipt Date: 20060112
  Transmission Date: 20060701
  Serious: No
  Sender: FDA-Public Use
  Company Number: 06H- 167-0304499-00

PATIENT

DRUGS (2)
  1. MORPHINE SULFATE [Suspect]
     Indication: ANALGESIC EFFECT
  2. OXYGEN (OXYGEN) [Concomitant]

REACTIONS (3)
  - OBSTRUCTIVE AIRWAYS DISORDER [None]
  - OVERDOSE [None]
  - OXYGEN SATURATION DECREASED [None]
